FAERS Safety Report 20259343 (Version 2)
Quarter: 2022Q1

REPORT INFORMATION
  Report Type: Report from Study
  Country: JP (occurrence: JP)
  Receive Date: 20211230
  Receipt Date: 20220331
  Transmission Date: 20220423
  Serious: Yes (Death)
  Sender: FDA-Public Use
  Company Number: JP-NAPPMUNDI-GBR-2021-0093881

PATIENT
  Age: 91 Year
  Sex: Female

DRUGS (3)
  1. OXYCONTIN [Suspect]
     Active Substance: OXYCODONE HYDROCHLORIDE
     Indication: Pain
     Dosage: 10 MG, DAILY
     Route: 048
     Dates: start: 20210807, end: 20211024
  2. CALONAL [Concomitant]
     Active Substance: ACETAMINOPHEN
     Indication: Pain
     Dosage: UNK
     Route: 065
     Dates: start: 20210604
  3. TRAMADOL [Concomitant]
     Active Substance: TRAMADOL
     Indication: Pain
     Dosage: UNK
     Route: 065
     Dates: start: 20210715

REACTIONS (1)
  - Death [Fatal]

NARRATIVE: CASE EVENT DATE: 20211024
